FAERS Safety Report 7556555-1 (Version None)
Quarter: 2011Q2

REPORT INFORMATION
  Report Type: 
  Country: None (occurrence: None)
  Receive Date: 20110620
  Receipt Date: 20110608
  Transmission Date: 20111010
  Serious: Yes (Hospitalization, Other)
  Sender: FDA-Public Use
  Company Number: US-TYCO HEALTHCARE/MALLINCKRODT-T201101215

PATIENT
  Age: 39 Year
  Sex: Female

DRUGS (4)
  1. HYDROMORPHONE HCL [Suspect]
     Indication: PAIN
     Dosage: UNK
  2. OPIOIDS [Suspect]
     Indication: PAIN
     Dosage: PCA
  3. BUPIVACAINE HCL [Suspect]
     Indication: PAIN
     Route: 008
  4. PAMELOR [Suspect]
     Indication: PAIN
     Dosage: UNK UNK, QD

REACTIONS (5)
  - HALLUCINATION [None]
  - APHASIA [None]
  - TREMOR [None]
  - DRUG INEFFECTIVE [None]
  - RESPIRATORY DISTRESS [None]
